FAERS Safety Report 11751019 (Version 1)
Quarter: 2015Q4

REPORT INFORMATION
  Report Type: Spontaneous
  Country: US (occurrence: US)
  Receive Date: 20151118
  Receipt Date: 20151118
  Transmission Date: 20160304
  Serious: No
  Sender: FDA-Public Use
  Company Number: US-NOVOPROD-453144

PATIENT
  Age: 46 Year
  Sex: Female

DRUGS (1)
  1. NOVOLOG [Suspect]
     Active Substance: INSULIN ASPART
     Indication: TYPE 1 DIABETES MELLITUS
     Route: 058

REACTIONS (9)
  - Blood glucose decreased [Recovered/Resolved]
  - Injection site pain [Recovered/Resolved]
  - Lethargy [Recovered/Resolved]
  - Injection site erythema [Recovered/Resolved]
  - Dry eye [Recovered/Resolved]
  - Headache [Recovered/Resolved]
  - Injection site pruritus [Recovered/Resolved]
  - Palpitations [Recovered/Resolved]
  - Blood glucose increased [Recovered/Resolved]
